FAERS Safety Report 6963951-X (Version None)
Quarter: 2010Q3

REPORT INFORMATION
  Report Type: 
  Country: None (occurrence: None)
  Receive Date: 20100902
  Receipt Date: 20100825
  Transmission Date: 20110219
  Serious: Yes (Other)
  Sender: FDA-Public Use
  Company Number: CA-AMGEN-QUU432216

PATIENT
  Sex: Female
  Weight: 68 kg

DRUGS (16)
  1. ARANESP [Suspect]
     Indication: RENAL FAILURE CHRONIC
     Route: 058
     Dates: start: 20030626, end: 20100817
  2. CELLCEPT [Suspect]
     Dates: start: 20070327
  3. SODIUM PHOSPHATE (32 P) [Concomitant]
     Dates: start: 20100519
  4. ONE-ALPHA [Concomitant]
     Dates: start: 20100114, end: 20100803
  5. CALCIUM/VITAMIN D [Concomitant]
     Dates: start: 20080421, end: 20100803
  6. SODIUM BICARBONATE [Concomitant]
     Dates: start: 20080611
  7. AVAPRO [Concomitant]
     Dates: start: 20060801
  8. LASIX [Concomitant]
  9. NORVASC [Concomitant]
     Dates: start: 20080327
  10. FOSAMAX [Concomitant]
     Dates: start: 20090709
  11. PREDNISONE [Concomitant]
     Dates: start: 20090709
  12. BACTRIM DS [Concomitant]
     Dates: start: 20070208
  13. PANTOPRAZOLE [Concomitant]
     Dates: start: 20090909
  14. FOLIC ACID [Concomitant]
     Dates: start: 20070208
  15. PROCYTOX [Concomitant]
     Dates: start: 20070801, end: 20080801
  16. IMURAN [Concomitant]
     Dates: end: 20070101

REACTIONS (2)
  - REFRACTORY ANAEMIA [None]
  - THERAPEUTIC RESPONSE DECREASED [None]
